FAERS Safety Report 10671220 (Version 1)
Quarter: 2014Q4

REPORT INFORMATION
  Report Type: Spontaneous
  Country: US (occurrence: None)
  Receive Date: 20141222
  Receipt Date: 20141222
  Transmission Date: 20150529
  Serious: Yes (Other)
  Sender: FDA-Public Use
  Company Number: None

PATIENT
  Age: 66 Year
  Sex: Female
  Weight: 87.09 kg

DRUGS (1)
  1. TOPIRAMATE. [Suspect]
     Active Substance: TOPIRAMATE
     Dosage: 1 TABLET, ONCE DAILY
     Route: 048
     Dates: start: 20141120, end: 20141121

REACTIONS (7)
  - Agitation [None]
  - Paraesthesia oral [None]
  - Hypervigilance [None]
  - Hypoaesthesia oral [None]
  - Paraesthesia [None]
  - Hypoaesthesia [None]
  - Anxiety [None]

NARRATIVE: CASE EVENT DATE: 20141120
